FAERS Safety Report 24580998 (Version 1)
Quarter: 2024Q4

REPORT INFORMATION
  Report Type: Spontaneous
  Country: US (occurrence: US)
  Receive Date: 20241105
  Receipt Date: 20241105
  Transmission Date: 20250114
  Serious: No
  Sender: PFIZER
  Company Number: US-PFIZER INC-202400291223

PATIENT
  Sex: Male

DRUGS (1)
  1. LORBRENA [Suspect]
     Active Substance: LORLATINIB
     Dosage: 100 MG, DAILY
     Route: 048
     Dates: start: 2024

REACTIONS (4)
  - Pyrexia [Recovered/Resolved]
  - Attention deficit hyperactivity disorder [Unknown]
  - Weight increased [Unknown]
  - Lipids abnormal [Unknown]
